FAERS Safety Report 5038124-0 (Version None)
Quarter: 2006Q2

REPORT INFORMATION
  Report Type: 
  Country: None (occurrence: None)
  Receive Date: 20060622
  Receipt Date: 20060609
  Transmission Date: 20061013
  Serious: Yes (Death)
  Sender: FDA-Public Use
  Company Number: 2005144089

PATIENT
  Age: 46 Year
  Sex: Male
  Weight: 80 kg

DRUGS (11)
  1. DIFLUCAN [Suspect]
     Indication: PAIN
     Dosage: 50 MG (50 MG, DAILY), ORAL
     Route: 048
     Dates: start: 20050605, end: 20050608
  2. DURAGESIC-100 [Suspect]
     Indication: PAIN
     Dosage: 150 MCG, 1 IN 72 HR, TRANSDERMAL
     Route: 062
     Dates: start: 20050401, end: 20050608
  3. VOLTAREN [Concomitant]
  4. STILNOCT        (ZOLPIDEM TARTRATE) [Concomitant]
  5. PRIMPERAN TAB [Concomitant]
  6. MORFIN              (MORPHINE) [Concomitant]
  7. RELIV                       (PARACETAMOL) [Concomitant]
  8. OXASCAND                 (OXAZEPAM) [Concomitant]
  9. LACTULOSE [Concomitant]
  10. MYCOSTATIN [Concomitant]
  11. XYLOCAINE [Concomitant]

REACTIONS (7)
  - BRAIN OEDEMA [None]
  - DRUG INTERACTION [None]
  - DRUG TOXICITY [None]
  - DYSPHAGIA [None]
  - PULMONARY OEDEMA [None]
  - RESPIRATORY FAILURE [None]
  - SHOCK [None]
